FAERS Safety Report 13876729 (Version 1)
Quarter: 2017Q3

REPORT INFORMATION
  Report Type: Spontaneous
  Country: US (occurrence: US)
  Receive Date: 20170814
  Receipt Date: 20170814
  Transmission Date: 20171127
  Serious: Yes (Hospitalization, Other)
  Sender: FDA-Public Use
  Company Number: None

PATIENT
  Age: 33 Year
  Sex: Female
  Weight: 72 kg

DRUGS (4)
  1. TRUVADA [Suspect]
     Active Substance: EMTRICITABINE\TENOFOVIR DISOPROXIL FUMARATE
     Indication: HIV INFECTION
     Route: 048
     Dates: start: 20151008, end: 20170801
  2. DOLUTEGRAVIR [Suspect]
     Active Substance: DOLUTEGRAVIR
     Indication: HIV INFECTION
     Route: 048
     Dates: start: 20151008, end: 20170801
  3. CHOLECACIFEROL [Concomitant]
  4. FEOSOL IRON [Concomitant]

REACTIONS (7)
  - Premature baby [None]
  - Twin pregnancy [None]
  - Maternal exposure during pregnancy [None]
  - Polyhydramnios [None]
  - Premature delivery [None]
  - Caesarean section [None]
  - Maternal drugs affecting foetus [None]

NARRATIVE: CASE EVENT DATE: 20170801
